FAERS Safety Report 10590641 (Version 4)
Quarter: 2015Q1

REPORT INFORMATION
  Report Type: Spontaneous
  Country: US (occurrence: US)
  Receive Date: 20141118
  Receipt Date: 20150122
  Transmission Date: 20150720
  Serious: Yes (Other)
  Sender: FDA-Public Use
  Company Number: US-PFIZER INC-2014311188

PATIENT
  Age: 3 Year
  Sex: Male
  Weight: 14.06 kg

DRUGS (2)
  1. ELELYSO [Suspect]
     Active Substance: TALIGLUCERASE ALFA
     Indication: GAUCHER^S DISEASE
     Dosage: 42 U/KG (600 UNITS) EVERY 14 DAYS
     Route: 042
     Dates: start: 20141029
  2. ELELYSO [Suspect]
     Active Substance: TALIGLUCERASE ALFA
     Dosage: UNK
     Route: 042

REACTIONS (7)
  - Product use issue [Unknown]
  - Excessive eye blinking [Recovered/Resolved]
  - Acne [Recovered/Resolved]
  - Vomiting projectile [Recovered/Resolved]
  - Crying [Recovered/Resolved]
  - Flushing [Recovered/Resolved]
  - Chills [Recovered/Resolved]

NARRATIVE: CASE EVENT DATE: 2014
